FAERS Safety Report 23404631 (Version 1)
Quarter: 2024Q1

REPORT INFORMATION
  Report Type: Spontaneous
  Country: US (occurrence: None)
  Receive Date: 20240112
  Receipt Date: 20240112
  Transmission Date: 20240410
  Serious: Yes (Hospitalization)
  Sender: FDA-Public Use
  Company Number: None

PATIENT
  Age: 61 Year
  Sex: Female

DRUGS (1)
  1. AMBRISENTAN [Suspect]
     Active Substance: AMBRISENTAN
     Indication: Pulmonary hypertension
     Dosage: FREQUENCY : DAILY;?
     Route: 048
     Dates: start: 20231031

REACTIONS (5)
  - Cardiac failure congestive [None]
  - Atrial fibrillation [None]
  - Respiratory failure [None]
  - Influenza [None]
  - Pneumonia [None]

NARRATIVE: CASE EVENT DATE: 20240106
